FAERS Safety Report 14408592 (Version 1)
Quarter: 2018Q1

REPORT INFORMATION
  Report Type: Other
  Country: GB (occurrence: GB)
  Receive Date: 20180119
  Receipt Date: 20180119
  Transmission Date: 20180509
  Serious: Yes (Hospitalization)
  Sender: FDA-Public Use
  Company Number: GB-MACLEODS PHARMACEUTICALS US LTD-MAC2018008566

PATIENT

DRUGS (6)
  1. ARIPIPRAZOLE SUSPENSION FOR INJECTION [Suspect]
     Active Substance: ARIPIPRAZOLE
     Indication: SCHIZOPHRENIA
     Dosage: 400 MG, 1 MONTH (SUSPENSION FOR INJECTION)
     Route: 030
     Dates: start: 20170309
  2. RISPERIDONE. [Concomitant]
     Active Substance: RISPERIDONE
     Indication: PSYCHOTIC DISORDER
     Dosage: 4 MG, QD, (2 MG, BID )
     Route: 065
     Dates: start: 20161125
  3. ARIPIPRAZOLE TABLET [Suspect]
     Active Substance: ARIPIPRAZOLE
     Dosage: 15 MG, QD, TABLET
     Route: 048
     Dates: start: 20170213
  4. ARIPIPRAZOLE TABLET [Suspect]
     Active Substance: ARIPIPRAZOLE
     Indication: SCHIZOPHRENIA
     Dosage: 5 MG, QD, TABLET
     Route: 048
     Dates: start: 20170207
  5. ARIPIPRAZOLE TABLET [Suspect]
     Active Substance: ARIPIPRAZOLE
     Dosage: 10 MG, QD, TABLET
     Route: 048
     Dates: start: 20170210
  6. DIAZEPAM. [Concomitant]
     Active Substance: DIAZEPAM
     Indication: PRODUCT USED FOR UNKNOWN INDICATION
     Dosage: 5 MG, (14 TIMES PER DAY)
     Route: 065
     Dates: start: 20170222

REACTIONS (2)
  - Psychotic disorder [Recovered/Resolved]
  - Hallucination, auditory [Unknown]

NARRATIVE: CASE EVENT DATE: 20170310
